FAERS Safety Report 22263357 (Version 1)
Quarter: 2023Q2

REPORT INFORMATION
  Report Type: Spontaneous
  Country: RU (occurrence: RU)
  Receive Date: 20230428
  Receipt Date: 20230428
  Transmission Date: 20230721
  Serious: Yes (Other)
  Sender: FDA-Public Use
  Company Number: RU-ROCHE-3335131

PATIENT
  Sex: Male

DRUGS (2)
  1. CAPECITABINE [Suspect]
     Active Substance: CAPECITABINE
     Indication: Neuroendocrine carcinoma of prostate
  2. GEMCITABINE [Concomitant]
     Active Substance: GEMCITABINE

REACTIONS (3)
  - Metastases to lung [Unknown]
  - Toxic encephalopathy [Unknown]
  - Product use in unapproved indication [Unknown]
